FAERS Safety Report 7244730-5 (Version None)
Quarter: 2011Q1

REPORT INFORMATION
  Report Type: 
  Country: None (occurrence: None)
  Receive Date: 20110126
  Receipt Date: 20110119
  Transmission Date: 20110831
  Serious: No
  Sender: FDA-Public Use
  Company Number: US-BIOGENIDEC-2010BI015498

PATIENT
  Age: 34 Year
  Sex: Female

DRUGS (1)
  1. TYSABRI [Suspect]
     Indication: MULTIPLE SCLEROSIS
     Route: 042
     Dates: start: 20100319

REACTIONS (12)
  - TENSION [None]
  - NAUSEA [None]
  - DEPRESSION [None]
  - URINARY TRACT INFECTION [None]
  - FATIGUE [None]
  - HYPERSOMNIA [None]
  - AMNESIA [None]
  - TREMOR [None]
  - HEADACHE [None]
  - GAIT DISTURBANCE [None]
  - DYSARTHRIA [None]
  - NASOPHARYNGITIS [None]
